FAERS Safety Report 10132550 (Version 3)
Quarter: 2014Q2

REPORT INFORMATION
  Report Type: Report from Study
  Country: FR (occurrence: FR)
  Receive Date: 20140428
  Receipt Date: 20140530
  Transmission Date: 20141212
  Serious: Yes (Hospitalization)
  Sender: FDA-Public Use
  Company Number: FR-ASTRAZENECA-2014SE23682

PATIENT
  Age: 27495 Day
  Sex: Female
  Weight: 57 kg

DRUGS (6)
  1. MOPRAL [Suspect]
     Indication: PROPHYLAXIS AGAINST GASTROINTESTINAL ULCER
     Route: 048
     Dates: start: 20140202, end: 20140213
  2. PROFENID [Suspect]
     Indication: RENAL COLIC
     Route: 048
     Dates: start: 20140202, end: 20140211
  3. AZD6140 CODE NOT BROKEN [Suspect]
     Indication: PERIPHERAL ARTERIAL OCCLUSIVE DISEASE
     Route: 048
     Dates: start: 20131007
  4. CACIT VIT D3 [Concomitant]
     Indication: OSTEOPOROSIS
     Route: 048
     Dates: start: 200802, end: 20140215
  5. CO-APROVEL [Concomitant]
     Indication: HYPERTENSION
     Route: 048
     Dates: start: 200910
  6. INEGY [Concomitant]
     Indication: HYPERCHOLESTEROLAEMIA
     Route: 048
     Dates: start: 20131203

REACTIONS (1)
  - Renal colic [Recovered/Resolved]
